FAERS Safety Report 12652458 (Version 1)
Quarter: 2016Q3

REPORT INFORMATION
  Report Type: Spontaneous
  Country: US (occurrence: US)
  Receive Date: 20160815
  Receipt Date: 20160815
  Transmission Date: 20161109
  Serious: No
  Sender: FDA-Public Use
  Company Number: US-PFIZER INC-2016380189

PATIENT
  Sex: Male

DRUGS (2)
  1. ZITHROMAX [Suspect]
     Active Substance: AZITHROMYCIN DIHYDRATE
     Dosage: UNK, 1X/DAY
     Route: 048
     Dates: start: 201602, end: 201602
  2. VIIBRYD [Suspect]
     Active Substance: VILAZODONE HYDROCHLORIDE
     Dosage: 20 MG, 1X/DAY
     Route: 048
     Dates: start: 201601, end: 201602

REACTIONS (6)
  - Skin disorder [Unknown]
  - Rash erythematous [Unknown]
  - Drug ineffective [Recovered/Resolved]
  - Thermal burn [Unknown]
  - Rash generalised [Unknown]
  - Chest pain [Unknown]

NARRATIVE: CASE EVENT DATE: 201602
